FAERS Safety Report 10223995 (Version 2)
Quarter: 2014Q2

REPORT INFORMATION
  Report Type: Spontaneous
  Country: CA (occurrence: CA)
  Receive Date: 20140609
  Receipt Date: 20140630
  Transmission Date: 20141212
  Serious: Yes (Other)
  Sender: FDA-Public Use
  Company Number: CA-BAYER-2014-081530

PATIENT
  Age: 69 Year
  Sex: Female

DRUGS (2)
  1. MIRENA [Suspect]
     Dosage: 20 MCG/24HR, CONT
     Route: 015
     Dates: start: 2005
  2. ESTRADIOL [Concomitant]
     Dosage: 37.5 ?G, BIW

REACTIONS (1)
  - Endometrial adenocarcinoma [None]
